FAERS Safety Report 6819484-4 (Version None)
Quarter: 2010Q3

REPORT INFORMATION
  Report Type: 
  Country: None (occurrence: None)
  Receive Date: 20100707
  Receipt Date: 20100622
  Transmission Date: 20110219
  Serious: Yes (Other)
  Sender: FDA-Public Use
  Company Number: PHHY2010VE41210

PATIENT
  Sex: Female

DRUGS (2)
  1. ACLASTA [Suspect]
     Indication: OSTEOPOROSIS
     Dosage: 5 MG / YEAR
     Route: 042
     Dates: start: 20100501
  2. NIMESULIDE [Concomitant]
     Indication: HEADACHE

REACTIONS (3)
  - BIOPSY [None]
  - INFECTION PARASITIC [None]
  - POLYP [None]
